FAERS Safety Report 6056070-0 (Version None)
Quarter: 2009Q1

REPORT INFORMATION
  Report Type: 
  Country: None (occurrence: None)
  Receive Date: 20090128
  Receipt Date: 20090120
  Transmission Date: 20090719
  Serious: Yes (Other)
  Sender: FDA-Public Use
  Company Number: CA-WATSON-2009-00305

PATIENT
  Age: 20 Year
  Sex: Female

DRUGS (2)
  1. MORPHINE SULFATE INJ [Suspect]
     Indication: ANALGESIA
     Dosage: 120 MG, BID
     Route: 048
  2. NEUMEGA [Suspect]
     Indication: NEPHROBLASTOMA
     Dosage: 50 MCG PER KG BODY WEIGHT DAILY
     Route: 058

REACTIONS (2)
  - DRUG INTERACTION [None]
  - THERAPEUTIC AGENT TOXICITY [None]
